FAERS Safety Report 9232125 (Version 1)
Quarter: 2013Q2

REPORT INFORMATION
  Report Type: Report from Study
  Country: US (occurrence: US)
  Receive Date: 20130415
  Receipt Date: 20130415
  Transmission Date: 20140414
  Serious: Yes (Death, Hospitalization)
  Sender: FDA-Public Use
  Company Number: US-US-EMD SERONO, INC.-7204818

PATIENT
  Age: 70 Year
  Sex: Female

DRUGS (2)
  1. REBIF [Suspect]
     Indication: MULTIPLE SCLEROSIS
     Route: 058
     Dates: start: 20040505
  2. REQUIP [Concomitant]
     Indication: RESTLESS LEGS SYNDROME
     Dates: start: 201112

REACTIONS (6)
  - Sepsis [Fatal]
  - Urinary tract infection [Fatal]
  - Metabolic encephalopathy [Unknown]
  - Chronic obstructive pulmonary disease [Unknown]
  - Decubitus ulcer [Unknown]
  - Multiple sclerosis [Unknown]
